FAERS Safety Report 24765122 (Version 1)
Quarter: 2024Q4

REPORT INFORMATION
  Report Type: Spontaneous
  Country: PT (occurrence: PT)
  Receive Date: 20241223
  Receipt Date: 20241223
  Transmission Date: 20250114
  Serious: Yes (Death, Hospitalization, Other)
  Sender: SAMSUNG BIOEPIS
  Company Number: PT-SAMSUNG BIOEPIS-SB-2024-38768

PATIENT
  Age: 70 Year
  Sex: Female

DRUGS (1)
  1. ADALIMUMAB [Suspect]
     Active Substance: ADALIMUMAB
     Indication: Rheumatoid arthritis

REACTIONS (4)
  - General physical health deterioration [Fatal]
  - Renal cancer metastatic [Unknown]
  - Metastasis [Unknown]
  - Pleural effusion [Unknown]
